FAERS Safety Report 25585548 (Version 1)
Quarter: 2025Q3

REPORT INFORMATION
  Report Type: Spontaneous
  Country: US (occurrence: None)
  Receive Date: 20250718
  Receipt Date: 20250718
  Transmission Date: 20251020
  Serious: Yes (Hospitalization)
  Sender: FDA-CTU
  Company Number: None

PATIENT
  Age: 80 Year
  Sex: Female

DRUGS (1)
  1. INFLIXIMAB [Suspect]
     Active Substance: INFLIXIMAB
     Indication: Rheumatoid arthritis
     Dates: start: 20250509, end: 20250624

REACTIONS (7)
  - Nausea [None]
  - Vomiting [None]
  - Diarrhoea [None]
  - Pulmonary haemorrhage [None]
  - Hernia [None]
  - Large intestine polyp [None]
  - Pain [None]

NARRATIVE: CASE EVENT DATE: 20250618
